FAERS Safety Report 26112665 (Version 1)
Quarter: 2025Q4

REPORT INFORMATION
  Report Type: Other
  Country: JP (occurrence: JP)
  Receive Date: 20251202
  Receipt Date: 20251202
  Transmission Date: 20260118
  Serious: Yes (Other)
  Sender: EMD SERONO INC
  Company Number: JP-Merck Healthcare KGaA-2025060633

PATIENT
  Age: 72 Year
  Sex: Male

DRUGS (1)
  1. TEPMETKO [Suspect]
     Active Substance: TEPOTINIB HYDROCHLORIDE
     Indication: Lung adenocarcinoma

REACTIONS (4)
  - Metastases to muscle [Unknown]
  - Face oedema [Unknown]
  - Oedema peripheral [Unknown]
  - Disease progression [Unknown]
